FAERS Safety Report 19441599 (Version 1)
Quarter: 2021Q2

REPORT INFORMATION
  Report Type: Spontaneous
  Country: CN (occurrence: CN)
  Receive Date: 20210621
  Receipt Date: 20210621
  Transmission Date: 20210717
  Serious: Yes (Hospitalization, Other)
  Sender: FDA-Public Use
  Company Number: CN-LUPIN PHARMACEUTICALS INC.-2021-09853

PATIENT
  Age: 3 Year
  Sex: Female
  Weight: 16 kg

DRUGS (15)
  1. VANCOMYCIN [Suspect]
     Active Substance: VANCOMYCIN
     Indication: INFECTION
     Dosage: 200 MILLIGRAM, TID (INFUSION DURATION OF 40 MIN)
     Route: 065
  2. MEROPENEM. [Concomitant]
     Active Substance: MEROPENEM
     Indication: INFECTION
     Dosage: UNK
     Route: 065
  3. MEROPENEM. [Concomitant]
     Active Substance: MEROPENEM
     Indication: ROTAVIRUS INFECTION
     Dosage: 300 MILLIGRAM, TID
     Route: 065
  4. CEFOPERAZONE+SULBACTAM [Concomitant]
     Active Substance: CEFOPERAZONE SODIUM\SULBACTAM SODIUM
     Indication: INFECTION
     Dosage: 800 MILLIGRAM, TID
     Route: 065
  5. CYCLOPHOSPHAMIDE. [Concomitant]
     Active Substance: CYCLOPHOSPHAMIDE
     Dosage: 1385 MILLIGRAM (3RD INDUCTION CHEMOTHERAPY)
     Route: 065
  6. CYCLOPHOSPHAMIDE. [Concomitant]
     Active Substance: CYCLOPHOSPHAMIDE
     Dosage: 1380 MILLIGRAM (CYCLE 2 CHEMOTHERAPY)
     Route: 065
  7. DOXORUBICIN [Concomitant]
     Active Substance: DOXORUBICIN
     Indication: NEUROBLASTOMA
     Dosage: 16.5 MILLIGRAM (BOTH INDUCTION CHEMOTHERAPY AND CYCLE 2 CHEMOTHERAPY)
     Route: 065
  8. TOPOTECAN [Concomitant]
     Active Substance: TOPOTECAN HYDROCHLORIDE
     Indication: NEUROBLASTOMA
     Dosage: 0.7 MILLIGRAM (1ST INDUCTION CHEMOTHERAPY)
     Route: 065
  9. FLUCONAZOLE. [Concomitant]
     Active Substance: FLUCONAZOLE
     Indication: INFECTION
     Dosage: 48 MILLIGRAM, QD
     Route: 065
  10. FLUCONAZOLE. [Concomitant]
     Active Substance: FLUCONAZOLE
     Dosage: UNK, AFTER INDUCTION CHEMOTHERAPY
     Route: 065
  11. CYCLOPHOSPHAMIDE. [Concomitant]
     Active Substance: CYCLOPHOSPHAMIDE
     Dosage: 290 MILLIGRAM (2ND INDUCTION CHEMOTHERAPY0
     Route: 065
  12. IMMUNOGLOBULIN [Concomitant]
     Indication: INFECTION
     Dosage: UNK
     Route: 065
  13. CYCLOPHOSPHAMIDE. [Concomitant]
     Active Substance: CYCLOPHOSPHAMIDE
     Indication: NEUROBLASTOMA
     Dosage: 230 MILLIGRAM (1ST INDUCTION CHEMOTHERAPY)
     Route: 065
  14. TOPOTECAN [Concomitant]
     Active Substance: TOPOTECAN HYDROCHLORIDE
     Dosage: 0.8 MILLIGRAM (2ND INDUCTION CHEMOTHERAPY)
     Route: 065
  15. VINCRISTINE [Concomitant]
     Active Substance: VINCRISTINE
     Indication: NEUROBLASTOMA
     Dosage: 0.4 MILLIGRAM (BOTH INDUCTION CHEMOTHERAPY AND CYCLE 2 CHEMOTHERAPY)
     Route: 065

REACTIONS (2)
  - Toxicity to various agents [Recovering/Resolving]
  - Seizure [Recovered/Resolved]
